FAERS Safety Report 7089871-0 (Version None)
Quarter: 2010Q4

REPORT INFORMATION
  Report Type: 
  Country: None (occurrence: None)
  Receive Date: 20101108
  Receipt Date: 20101021
  Transmission Date: 20110411
  Serious: Yes (Hospitalization)
  Sender: FDA-Public Use
  Company Number: DE-AMGEN-DEUSP2010001059

PATIENT

DRUGS (5)
  1. ENBREL [Suspect]
     Indication: ANKYLOSING SPONDYLITIS
     Route: 058
     Dates: start: 20091001, end: 20100101
  2. DIAZEPAM [Concomitant]
     Dosage: UNKNOWN
     Dates: start: 20010101
  3. MIRTAZAPINE [Concomitant]
     Dosage: UNKNOWN
  4. ARCOXIA [Concomitant]
     Dosage: UNKNOWN
  5. IBUPROFEN [Concomitant]
     Dosage: ON DEMAND

REACTIONS (1)
  - CROHN'S DISEASE [None]
